FAERS Safety Report 14645737 (Version 1)
Quarter: 2018Q1

REPORT INFORMATION
  Report Type: Spontaneous
  Country: US (occurrence: US)
  Receive Date: 20180316
  Receipt Date: 20180316
  Transmission Date: 20180509
  Serious: Yes (Death)
  Sender: FDA-Public Use
  Company Number: US-BEH-2018088705

PATIENT
  Age: 8 Year
  Sex: Female
  Weight: 18.14 kg

DRUGS (25)
  1. FLUTICASONE. [Concomitant]
     Active Substance: FLUTICASONE
  2. BUDESONIDE. [Concomitant]
     Active Substance: BUDESONIDE
  3. AMOXICILLIN. [Concomitant]
     Active Substance: AMOXICILLIN
  4. WARFARIN [Concomitant]
     Active Substance: WARFARIN
  5. OXCARBAZEPINE. [Concomitant]
     Active Substance: OXCARBAZEPINE
  6. JANTOVEN [Concomitant]
     Active Substance: WARFARIN SODIUM
  7. NYSTATIN. [Concomitant]
     Active Substance: NYSTATIN
  8. SPIRONOLACTONE. [Concomitant]
     Active Substance: SPIRONOLACTONE
  9. HIZENTRA [Suspect]
     Active Substance: HUMAN IMMUNOGLOBULIN G
     Indication: MALABSORPTION
     Dosage: UNK
     Route: 058
  10. PROBIOTIC                          /06395501/ [Concomitant]
     Active Substance: BIFIDOBACTERIUM ANIMALIS LACTIS
  11. EPINEPHRINE. [Concomitant]
     Active Substance: EPINEPHRINE
  12. HIZENTRA [Suspect]
     Active Substance: HUMAN IMMUNOGLOBULIN G
     Indication: NECROTISING COLITIS
     Dosage: 8 G, QW
     Route: 058
     Dates: start: 20171115
  13. ACETAMINOPHEN. [Concomitant]
     Active Substance: ACETAMINOPHEN
  14. POTASSIUM CHLORIDE. [Concomitant]
     Active Substance: POTASSIUM CHLORIDE
  15. VITAMIN D3 [Concomitant]
     Active Substance: CHOLECALCIFEROL
  16. SILDENAFIL. [Concomitant]
     Active Substance: SILDENAFIL
  17. LMX                                /00033401/ [Concomitant]
  18. FUROSEMIDE. [Concomitant]
     Active Substance: FUROSEMIDE
  19. DIPHENHYDRAMINE. [Concomitant]
     Active Substance: DIPHENHYDRAMINE
  20. HIZENTRA [Suspect]
     Active Substance: HUMAN IMMUNOGLOBULIN G
     Indication: FEEDING INTOLERANCE
  21. MAGNESIUM OXIDE. [Concomitant]
     Active Substance: MAGNESIUM OXIDE
  22. ENALAPRIL [Concomitant]
     Active Substance: ENALAPRIL
  23. ZYRTEC [Concomitant]
     Active Substance: CETIRIZINE HYDROCHLORIDE
  24. PROAIR HFA [Concomitant]
     Active Substance: ALBUTEROL SULFATE
  25. CARVEDILOL. [Concomitant]
     Active Substance: CARVEDILOL

REACTIONS (1)
  - Death [Fatal]

NARRATIVE: CASE EVENT DATE: 20180307
